FAERS Safety Report 25438943 (Version 1)
Quarter: 2025Q2

REPORT INFORMATION
  Report Type: Spontaneous
  Country: CA (occurrence: CA)
  Receive Date: 20250616
  Receipt Date: 20250616
  Transmission Date: 20250717
  Serious: Yes (Death, Life-Threatening, Hospitalization, Disabling, Congenital Anomaly, Other)
  Sender: Haleon PLC
  Company Number: CA-HALEON-2246901

PATIENT
  Age: 80 Year
  Sex: Male

DRUGS (219)
  1. FLONASE ALLERGY RELIEF [Suspect]
     Active Substance: FLUTICASONE PROPIONATE
     Indication: Product used for unknown indication
  2. FLONASE ALLERGY RELIEF [Suspect]
     Active Substance: FLUTICASONE PROPIONATE
     Indication: Nutritional supplementation
  3. ALLOPURINOL [Suspect]
     Active Substance: ALLOPURINOL
     Indication: Product used for unknown indication
     Route: 048
  4. ALLOPURINOL [Suspect]
     Active Substance: ALLOPURINOL
     Indication: Off label use
  5. ALLOPURINOL [Suspect]
     Active Substance: ALLOPURINOL
     Indication: Intentional product misuse
  6. ALLOPURINOL [Suspect]
     Active Substance: ALLOPURINOL
     Indication: Blood uric acid increased
  7. ALLOPURINOL [Suspect]
     Active Substance: ALLOPURINOL
     Indication: Product used for unknown indication
     Dosage: PATIENT ROA - ORAL, DOSE FORM - UNKNOWN
  8. ALLOPURINOL [Suspect]
     Active Substance: ALLOPURINOL
     Indication: Off label use
     Dosage: PATIENT ROA - ORAL, DOSE FORM - UNKNOWN
  9. ALLOPURINOL [Suspect]
     Active Substance: ALLOPURINOL
     Indication: Intentional product misuse
     Dosage: PATIENT ROA - ORAL, DOSE FORM - UNKNOWN
  10. ALLOPURINOL [Suspect]
     Active Substance: ALLOPURINOL
     Indication: Blood uric acid increased
  11. ALLOPURINOL [Suspect]
     Active Substance: ALLOPURINOL
  12. ALLOPURINOL [Suspect]
     Active Substance: ALLOPURINOL
     Dosage: PATIENT ROA - ORAL, DOSE FORM - UNKNOWN
  13. ALLOPURINOL [Suspect]
     Active Substance: ALLOPURINOL
  14. CEFTRIAXONE SODIUM [Suspect]
     Active Substance: CEFTRIAXONE SODIUM
     Indication: Bacterial infection
     Route: 042
  15. CEFTRIAXONE SODIUM [Suspect]
     Active Substance: CEFTRIAXONE SODIUM
     Indication: Bacterial infection
     Dosage: PATIENT ROA - INTRAVENOUS (NOT OTHERWISE SPECIFIED)
  16. CEFTRIAXONE SODIUM [Suspect]
     Active Substance: CEFTRIAXONE SODIUM
  17. CEFTRIAXONE SODIUM [Suspect]
     Active Substance: CEFTRIAXONE SODIUM
  18. DOBUTAMINE [Suspect]
     Active Substance: DOBUTAMINE HYDROCHLORIDE
     Indication: Product used for unknown indication
  19. DOBUTAMINE [Suspect]
     Active Substance: DOBUTAMINE HYDROCHLORIDE
     Indication: Off label use
     Dosage: DOSE FORM - UNKNOWN, PATIENT ROA - INTRAVENOUS (NOT OTHERWISE SPECIFIED)
  20. DOBUTAMINE [Suspect]
     Active Substance: DOBUTAMINE HYDROCHLORIDE
     Indication: Cardiogenic shock
  21. DOBUTAMINE [Suspect]
     Active Substance: DOBUTAMINE HYDROCHLORIDE
  22. GABAPENTIN [Suspect]
     Active Substance: GABAPENTIN
     Indication: Product used for unknown indication
     Dosage: PATIENT ROA - ORAL
  23. GABAPENTIN [Suspect]
     Active Substance: GABAPENTIN
     Indication: Off label use
     Dosage: DOSE FORM- UNKNOWN , PATIENT ROA - ORAL
  24. GABAPENTIN [Suspect]
     Active Substance: GABAPENTIN
     Indication: Neuralgia
     Dosage: DOSE FORM - UNKNOWN, PATIENT ROA - ORAL
  25. GABAPENTIN [Suspect]
     Active Substance: GABAPENTIN
     Indication: Intentional product misuse
  26. GABAPENTIN [Suspect]
     Active Substance: GABAPENTIN
  27. HEPARIN SODIUM [Suspect]
     Active Substance: HEPARIN SODIUM
     Indication: Product used for unknown indication
     Route: 042
  28. HEPARIN SODIUM [Suspect]
     Active Substance: HEPARIN SODIUM
     Indication: Anticoagulant therapy
  29. HEPARIN SODIUM [Suspect]
     Active Substance: HEPARIN SODIUM
     Indication: Product used for unknown indication
  30. HEPARIN SODIUM [Suspect]
     Active Substance: HEPARIN SODIUM
     Indication: Anticoagulant therapy
  31. HEPARIN SODIUM [Suspect]
     Active Substance: HEPARIN SODIUM
     Dosage: DOSE FORM - SOLUTION FOR INJECTION/INFUSION, PATIENT ROA - INTRAVENOUS (NOT OTHERWISE SPECIFIED)
  32. HEPARIN SODIUM [Suspect]
     Active Substance: HEPARIN SODIUM
     Dosage: DOSE FORM - SOLUTION FOR INJECTION/INFUSION, PATIENT ROA - INTRACAVERNOUS
  33. HEPARIN SODIUM [Suspect]
     Active Substance: HEPARIN SODIUM
  34. HEPARIN SODIUM [Suspect]
     Active Substance: HEPARIN SODIUM
  35. HEPARIN SODIUM [Suspect]
     Active Substance: HEPARIN SODIUM
  36. HEPARIN SODIUM [Suspect]
     Active Substance: HEPARIN SODIUM
  37. HEPARIN SODIUM [Suspect]
     Active Substance: HEPARIN SODIUM
  38. HEPARIN SODIUM [Suspect]
     Active Substance: HEPARIN SODIUM
     Dosage: DOSE FORM - SOLUTION FOR INJECTION/INFUSION, PATIENT ROA - INTRAVENOUS (NOT OTHERWISE SPECIFIED)
  39. HEPARIN SODIUM [Suspect]
     Active Substance: HEPARIN SODIUM
     Dosage: DOSE FORM - SOLUTION FOR INJECTION/INFUSION, PATIENT ROA - INTRAVENOUS (NOT OTHERWISE SPECIFIED)
  40. HEPARIN SODIUM [Suspect]
     Active Substance: HEPARIN SODIUM
     Dosage: DOSE FORM - SOLUTION FOR INJECTION/INFUSION PATIENT ROA - INTRACAVERNOUS
  41. HYDROMORPHONE HYDROCHLORIDE [Suspect]
     Active Substance: HYDROMORPHONE HYDROCHLORIDE
     Indication: Product used for unknown indication
  42. HYDROMORPHONE HYDROCHLORIDE [Suspect]
     Active Substance: HYDROMORPHONE HYDROCHLORIDE
     Indication: Off label use
     Dosage: PATIENT ROA - SUBCUTANEOUS, DOSE FORM - UNKNOWN
  43. HYDROMORPHONE HYDROCHLORIDE [Suspect]
     Active Substance: HYDROMORPHONE HYDROCHLORIDE
     Indication: Intentional product misuse
  44. HYDROMORPHONE HYDROCHLORIDE [Suspect]
     Active Substance: HYDROMORPHONE HYDROCHLORIDE
     Indication: Analgesic therapy
  45. HYDROMORPHONE HYDROCHLORIDE [Suspect]
     Active Substance: HYDROMORPHONE HYDROCHLORIDE
  46. HYDROMORPHONE HYDROCHLORIDE [Suspect]
     Active Substance: HYDROMORPHONE HYDROCHLORIDE
  47. HYDROMORPHONE HYDROCHLORIDE [Suspect]
     Active Substance: HYDROMORPHONE HYDROCHLORIDE
  48. HYDROMORPHONE HYDROCHLORIDE [Suspect]
     Active Substance: HYDROMORPHONE HYDROCHLORIDE
  49. HYDROMORPHONE HYDROCHLORIDE [Suspect]
     Active Substance: HYDROMORPHONE HYDROCHLORIDE
  50. HYDROMORPHONE HYDROCHLORIDE [Suspect]
     Active Substance: HYDROMORPHONE HYDROCHLORIDE
  51. HYDROMORPHONE HYDROCHLORIDE [Suspect]
     Active Substance: HYDROMORPHONE HYDROCHLORIDE
  52. HYDROMORPHONE HYDROCHLORIDE [Suspect]
     Active Substance: HYDROMORPHONE HYDROCHLORIDE
     Dosage: PATIENT ROA - SUBCUTANEOUS, DOSE FORM - UNKNOWN
  53. HYDROMORPHONE HYDROCHLORIDE [Suspect]
     Active Substance: HYDROMORPHONE HYDROCHLORIDE
  54. HYDROMORPHONE HYDROCHLORIDE [Suspect]
     Active Substance: HYDROMORPHONE HYDROCHLORIDE
     Dosage: PATIENT ROA - UNKNOWN, DOSE FORM - UNKNOWN
  55. METRONIDAZOLE [Suspect]
     Active Substance: METRONIDAZOLE
     Indication: Bacterial infection
     Dosage: PATIENT ROA - ORAL
  56. METRONIDAZOLE [Suspect]
     Active Substance: METRONIDAZOLE
  57. METRONIDAZOLE [Suspect]
     Active Substance: METRONIDAZOLE
  58. METRONIDAZOLE [Suspect]
     Active Substance: METRONIDAZOLE
  59. METRONIDAZOLE [Suspect]
     Active Substance: METRONIDAZOLE
  60. METRONIDAZOLE [Suspect]
     Active Substance: METRONIDAZOLE
     Dosage: PATIENT ROA - ORAL, DOSE FORM - UNKNOWN
  61. METRONIDAZOLE [Suspect]
     Active Substance: METRONIDAZOLE
  62. METRONIDAZOLE [Suspect]
     Active Substance: METRONIDAZOLE
  63. METRONIDAZOLE [Suspect]
     Active Substance: METRONIDAZOLE
  64. METRONIDAZOLE [Suspect]
     Active Substance: METRONIDAZOLE
     Dosage: PATIENT ROA - ORAL, DOSE FORM - UNKNOWN
     Route: 048
  65. METRONIDAZOLE [Suspect]
     Active Substance: METRONIDAZOLE
  66. NOREPINEPHRINE [Suspect]
     Active Substance: NOREPINEPHRINE
     Indication: Stress
     Dosage: PATIENT ROA - ORAL
  67. NOREPINEPHRINE [Suspect]
     Active Substance: NOREPINEPHRINE
  68. NOREPINEPHRINE [Suspect]
     Active Substance: NOREPINEPHRINE
     Dosage: PATIENT ROA - ORAL, DOSE FORM - UNKNOWN
  69. NOREPINEPHRINE [Suspect]
     Active Substance: NOREPINEPHRINE
     Dosage: PATIENT ROA -ORAL, DOSE FORM - UNKNOWN
  70. NOREPINEPHRINE [Suspect]
     Active Substance: NOREPINEPHRINE
     Dosage: PATIENT ROA - INTRAVENOUS (NOT OTHERWISE SPECIFIED), DOSE FORM - UNKNOWN
  71. NOREPINEPHRINE [Suspect]
     Active Substance: NOREPINEPHRINE
  72. POTASSIUM CHLORIDE [Suspect]
     Active Substance: POTASSIUM CHLORIDE
     Indication: Product used for unknown indication
     Dosage: PATIENT ROA - ORAL
  73. POTASSIUM CHLORIDE [Suspect]
     Active Substance: POTASSIUM CHLORIDE
     Indication: Constipation
  74. ALBUTEROL [Suspect]
     Active Substance: ALBUTEROL
     Indication: Product used for unknown indication
     Dosage: PATIENT ROA - INHALATION
  75. ALBUTEROL [Suspect]
     Active Substance: ALBUTEROL
     Indication: Off label use
     Dosage: PATIENT ROA - INHALATION, DOSE FORM -UNKNOWN
  76. ALBUTEROL [Suspect]
     Active Substance: ALBUTEROL
     Indication: Intentional product misuse
     Dosage: PATIENT ROA - INHALATION, DOSE FORM -UNKNOWN
  77. ALBUTEROL [Suspect]
     Active Substance: ALBUTEROL
     Indication: Chronic obstructive pulmonary disease
  78. ALBUTEROL [Suspect]
     Active Substance: ALBUTEROL
     Dosage: PATIENT ROA - INHALATION, DOSE FORM -UNKNOWN
  79. ALBUTEROL [Suspect]
     Active Substance: ALBUTEROL
     Dosage: PATIENT ROA - UNKNOWN, DOSE FORM -UNKNOWN
  80. ALBUTEROL [Suspect]
     Active Substance: ALBUTEROL
     Dosage: PATIENT ROA - UNKNOWN, DOSE FORM -UNKNOWN
  81. ALBUTEROL [Suspect]
     Active Substance: ALBUTEROL
  82. ALBUTEROL [Suspect]
     Active Substance: ALBUTEROL
     Dosage: PATIENT ROA - INHALATION, DOSE FORM -UNKNOWN
  83. ALBUTEROL [Suspect]
     Active Substance: ALBUTEROL
  84. ALBUTEROL [Suspect]
     Active Substance: ALBUTEROL
     Dosage: PATIENT ROA - UNKNOWN, DOSE FORM -UNKNOWN
  85. ALBUTEROL [Suspect]
     Active Substance: ALBUTEROL
  86. ALBUTEROL [Suspect]
     Active Substance: ALBUTEROL
  87. ALBUTEROL [Suspect]
     Active Substance: ALBUTEROL
     Dosage: PATIENT RO A - INHALATION, DOSE FORM -UNKNOWN
  88. ALBUTEROL [Suspect]
     Active Substance: ALBUTEROL
  89. ALBUTEROL [Suspect]
     Active Substance: ALBUTEROL
  90. ALBUTEROL [Suspect]
     Active Substance: ALBUTEROL
     Dosage: PATIENT ROA - UNKNOWN,  DOSE FORM -UNKNOWN
  91. ALBUTEROL [Suspect]
     Active Substance: ALBUTEROL
  92. ALBUTEROL [Suspect]
     Active Substance: ALBUTEROL
  93. ALBUTEROL [Suspect]
     Active Substance: ALBUTEROL
     Dosage: PATIENT ROA - UNKNOWN, DOSE FORM - UNKNOWN
  94. ALBUTEROL [Suspect]
     Active Substance: ALBUTEROL
  95. ALBUTEROL [Suspect]
     Active Substance: ALBUTEROL
  96. ALBUTEROL [Suspect]
     Active Substance: ALBUTEROL
  97. ALBUTEROL [Suspect]
     Active Substance: ALBUTEROL
  98. ALBUTEROL [Suspect]
     Active Substance: ALBUTEROL
  99. ALBUTEROL [Suspect]
     Active Substance: ALBUTEROL
     Dosage: PATIENT ROA - UNKNOWN, DOSE FORM - UNKNOWN
  100. ALBUTEROL [Suspect]
     Active Substance: ALBUTEROL
  101. ALBUTEROL [Suspect]
     Active Substance: ALBUTEROL
     Dosage: PATIENT ROA - UNKNOWN, DOSE FORM - UNKNOWN
  102. ALBUTEROL [Suspect]
     Active Substance: ALBUTEROL
  103. ALBUTEROL [Suspect]
     Active Substance: ALBUTEROL
     Dosage: PATIENT ROA - UNKNOWN, DOSE FORM - UNKNOWN
  104. ALBUTEROL [Suspect]
     Active Substance: ALBUTEROL
  105. ALBUTEROL [Suspect]
     Active Substance: ALBUTEROL
     Dosage: PATIENT ROA - UNKNOWN, DOSE FORM - UNKNOWN
  106. ALBUTEROL [Suspect]
     Active Substance: ALBUTEROL
  107. ALBUTEROL [Suspect]
     Active Substance: ALBUTEROL
     Dosage: PATIENT ROA - UNKNOWN, DOSE FORM - UNKNOWN
  108. ALBUTEROL [Suspect]
     Active Substance: ALBUTEROL
     Dosage: PATIENT ROA - INHALATION , DOSE FORM - UNKNOWN
  109. ALBUTEROL [Suspect]
     Active Substance: ALBUTEROL
  110. ALBUTEROL [Suspect]
     Active Substance: ALBUTEROL
     Dosage: PATIENT ROA - UNKNOWN , DOSE FORM - UNKNOWN
  111. ALBUTEROL [Suspect]
     Active Substance: ALBUTEROL
  112. ALBUTEROL [Suspect]
     Active Substance: ALBUTEROL
  113. ALBUTEROL [Suspect]
     Active Substance: ALBUTEROL
  114. ALBUTEROL [Suspect]
     Active Substance: ALBUTEROL
     Dosage: PATIENT ROA - INHALATION , DOSE FORM  - UNKNOWN
  115. LANSOPRAZOLE [Suspect]
     Active Substance: LANSOPRAZOLE
     Indication: Off label use
     Route: 048
  116. LANSOPRAZOLE [Suspect]
     Active Substance: LANSOPRAZOLE
     Indication: Intentional product misuse
     Route: 048
  117. LANSOPRAZOLE [Suspect]
     Active Substance: LANSOPRAZOLE
     Indication: Antacid therapy
  118. ONDANSETRON [Suspect]
     Active Substance: ONDANSETRON
     Indication: Vomiting
     Dosage: PATIENT ROA- INTRAVENOUS (NOT OTHERWISE SPECIFIED), DOSE FORM - UNKNOWN
  119. ONDANSETRON [Suspect]
     Active Substance: ONDANSETRON
     Indication: Product used for unknown indication
     Dosage: PATIENT ROA- INTRAVENOUS (NOT OTHERWISE SPECIFIED), DOSE FORM - UNKNOWN
  120. ONDANSETRON [Suspect]
     Active Substance: ONDANSETRON
     Indication: Off label use
     Dosage: PATIENT ROA- INTRAVENOUS (NOT OTHERWISE SPECIFIED), DOSE FORM - UNKNOWN
  121. ONDANSETRON [Suspect]
     Active Substance: ONDANSETRON
     Indication: Nausea
     Dosage: PATIENT ROA- INTRAVENOUS (NOT OTHERWISE SPECIFIED), DOSE FORM - UNKNOWN
  122. ONDANSETRON [Suspect]
     Active Substance: ONDANSETRON
     Dosage: PATIENT ROA- INTRAVENOUS (NOT OTHERWISE SPECIFIED), DOSE FORM - UNKNOWN
  123. ONDANSETRON [Suspect]
     Active Substance: ONDANSETRON
  124. ONDANSETRON [Suspect]
     Active Substance: ONDANSETRON
  125. ONDANSETRON [Suspect]
     Active Substance: ONDANSETRON
  126. ONDANSETRON [Suspect]
     Active Substance: ONDANSETRON
  127. ONDANSETRON [Suspect]
     Active Substance: ONDANSETRON
  128. ONDANSETRON [Suspect]
     Active Substance: ONDANSETRON
  129. ONDANSETRON [Suspect]
     Active Substance: ONDANSETRON
  130. ONDANSETRON [Suspect]
     Active Substance: ONDANSETRON
  131. ONDANSETRON [Suspect]
     Active Substance: ONDANSETRON
     Dosage: DOSE FORM - UNKNOWN, PATIENT ROA - INTRAVENOUS (NOT OTHERWISE SPECIFIED)
  132. ONDANSETRON [Suspect]
     Active Substance: ONDANSETRON
  133. ONDANSETRON [Suspect]
     Active Substance: ONDANSETRON
  134. ONDANSETRON [Suspect]
     Active Substance: ONDANSETRON
  135. ONDANSETRON [Suspect]
     Active Substance: ONDANSETRON
  136. ONDANSETRON [Suspect]
     Active Substance: ONDANSETRON
  137. ONDANSETRON [Suspect]
     Active Substance: ONDANSETRON
  138. ONDANSETRON [Suspect]
     Active Substance: ONDANSETRON
     Dosage: DOSE FORM - UNKNOWN, PATIENT ROA - INTRAVENOUS (NOT OTHERWISE SPECIFIED)
  139. ONDANSETRON [Suspect]
     Active Substance: ONDANSETRON
     Dosage: DOSE FORM - UNKNOWN, PATIENT ROA - INTRAVENOUS (NOT OTHERWISE SPECIFIED)
  140. ONDANSETRON [Suspect]
     Active Substance: ONDANSETRON
  141. ONDANSETRON [Suspect]
     Active Substance: ONDANSETRON
  142. ONDANSETRON [Suspect]
     Active Substance: ONDANSETRON
  143. ONDANSETRON [Suspect]
     Active Substance: ONDANSETRON
  144. ONDANSETRON [Suspect]
     Active Substance: ONDANSETRON
  145. ONDANSETRON [Suspect]
     Active Substance: ONDANSETRON
  146. ONDANSETRON [Suspect]
     Active Substance: ONDANSETRON
  147. ONDANSETRON [Suspect]
     Active Substance: ONDANSETRON
     Dosage: DOSE FORM - UNKNOWN, PATIENT ROA -ORAL
  148. ONDANSETRON [Suspect]
     Active Substance: ONDANSETRON
     Dosage: DOSE FORM - UNKNOWN, PATIENT ROA - ORAL
  149. ONDANSETRON [Suspect]
     Active Substance: ONDANSETRON
  150. ONDANSETRON [Suspect]
     Active Substance: ONDANSETRON
     Dosage: DOSE FORM - UNKNOWN, PATIENT ROA - INTRAVENOUS (NOT OTHERWISE SPECIFIED)
  151. ONDANSETRON [Suspect]
     Active Substance: ONDANSETRON
     Dosage: DOSE FORM - UNKNOWN, PATIENT ROA - INTRAVENOUS (NOT OTHERWISE SPECIFIED)
  152. ONDANSETRON [Suspect]
     Active Substance: ONDANSETRON
     Dosage: DOSE FORM - UNKNOWN, PATIENT ROA - INTRAVENOUS (NOT OTHERWISE SPECIFIED)
  153. ONDANSETRON [Suspect]
     Active Substance: ONDANSETRON
     Dosage: PATIENT ROA - INTRAVENOUS (NOT OTHERWISE SPECIFIED)
  154. ONDANSETRON [Suspect]
     Active Substance: ONDANSETRON
     Dosage: DOSE FORM - UNKNOWN, PATIENT ROA - INTRAVENOUS (NOT OTHERWISE SPECIFIED)
  155. SODIUM BICARBONATE [Suspect]
     Active Substance: SODIUM BICARBONATE
     Indication: Constipation
     Dosage: PATIENT ROA - UNKNOWN
  156. HYDROMORPHONE [Suspect]
     Active Substance: HYDROMORPHONE
     Indication: Analgesic therapy
  157. HYDROMORPHONE [Suspect]
     Active Substance: HYDROMORPHONE
  158. HYDROMORPHONE [Suspect]
     Active Substance: HYDROMORPHONE
  159. HYDROMORPHONE [Suspect]
     Active Substance: HYDROMORPHONE
  160. HYDROMORPHONE [Suspect]
     Active Substance: HYDROMORPHONE
  161. HYDROMORPHONE [Suspect]
     Active Substance: HYDROMORPHONE
     Dosage: PATIENT ROA - SUBCUTANEOUS, DOSE FORM - UNKNOWN
  162. HYDROMORPHONE [Suspect]
     Active Substance: HYDROMORPHONE
  163. HYDROMORPHONE [Suspect]
     Active Substance: HYDROMORPHONE
     Dosage: PATIENT ROA - UNKNOWN, DOSE FORM - UNKNOWN
  164. HYDROMORPHONE [Suspect]
     Active Substance: HYDROMORPHONE
     Dosage: PATIENT ROA - UNKNOWN, DOSE FORM - UNKNOWN
  165. HYDROMORPHONE [Suspect]
     Active Substance: HYDROMORPHONE
  166. HYDROMORPHONE [Suspect]
     Active Substance: HYDROMORPHONE
     Dosage: DOSE FORM - UNKNOWN, PATIENT ROA - SUBCUTANEOUS
  167. HYDROMORPHONE [Suspect]
     Active Substance: HYDROMORPHONE
     Dosage: PATIENT ROA - SUBCUTANEOUS
  168. AMIODARONE HYDROCHLORIDE [Suspect]
     Active Substance: AMIODARONE HYDROCHLORIDE
     Indication: Ventricular fibrillation
     Dosage: PATIENT ROA - INTRAVENOUS (NOT OTHERWISE SPECIFIED), DOSE FORM - UNKNOWN, THERAPY DURATION - 1 DAY
  169. AMIODARONE HYDROCHLORIDE [Suspect]
     Active Substance: AMIODARONE HYDROCHLORIDE
     Indication: Product used for unknown indication
  170. AMIODARONE HYDROCHLORIDE [Suspect]
     Active Substance: AMIODARONE HYDROCHLORIDE
     Indication: Off label use
  171. AMIODARONE HYDROCHLORIDE [Suspect]
     Active Substance: AMIODARONE HYDROCHLORIDE
     Indication: Intentional product misuse
     Dosage: PATIENT ROA - UNKNOWN, DOSE FORM - UNKNOWN
  172. AMIODARONE HYDROCHLORIDE [Suspect]
     Active Substance: AMIODARONE HYDROCHLORIDE
     Indication: Drug therapy
  173. AMIODARONE HYDROCHLORIDE [Suspect]
     Active Substance: AMIODARONE HYDROCHLORIDE
  174. AMIODARONE HYDROCHLORIDE [Suspect]
     Active Substance: AMIODARONE HYDROCHLORIDE
  175. AMIODARONE HYDROCHLORIDE [Suspect]
     Active Substance: AMIODARONE HYDROCHLORIDE
  176. AMIODARONE HYDROCHLORIDE [Suspect]
     Active Substance: AMIODARONE HYDROCHLORIDE
     Dosage: PATIENT ROA - UNKNOWN, DOSE FORM - UNKNOWN
  177. AMIODARONE HYDROCHLORIDE [Suspect]
     Active Substance: AMIODARONE HYDROCHLORIDE
  178. AMIODARONE HYDROCHLORIDE [Suspect]
     Active Substance: AMIODARONE HYDROCHLORIDE
  179. AMIODARONE HYDROCHLORIDE [Suspect]
     Active Substance: AMIODARONE HYDROCHLORIDE
  180. AMIODARONE HYDROCHLORIDE [Suspect]
     Active Substance: AMIODARONE HYDROCHLORIDE
  181. AMIODARONE HYDROCHLORIDE [Suspect]
     Active Substance: AMIODARONE HYDROCHLORIDE
     Dosage: PATIENT ROA - UNKNOWN, DOSE FORM - UNKNOWN
  182. AMIODARONE HYDROCHLORIDE [Suspect]
     Active Substance: AMIODARONE HYDROCHLORIDE
     Indication: Ventricular fibrillation
     Route: 042
  183. AMIODARONE HYDROCHLORIDE [Suspect]
     Active Substance: AMIODARONE HYDROCHLORIDE
     Indication: Product used for unknown indication
  184. AMIODARONE HYDROCHLORIDE [Suspect]
     Active Substance: AMIODARONE HYDROCHLORIDE
     Indication: Off label use
  185. AMIODARONE HYDROCHLORIDE [Suspect]
     Active Substance: AMIODARONE HYDROCHLORIDE
     Indication: Intentional product misuse
  186. AMIODARONE HYDROCHLORIDE [Suspect]
     Active Substance: AMIODARONE HYDROCHLORIDE
     Indication: Drug therapy
  187. DOCUSATE SODIUM [Suspect]
     Active Substance: DOCUSATE SODIUM
     Indication: Product used for unknown indication
  188. LANSOPRAZOLE [Suspect]
     Active Substance: LANSOPRAZOLE
     Indication: Off label use
     Dosage: DOSE FORM - CAPSULE DELAYED RELEASE
     Route: 048
  189. LANSOPRAZOLE [Suspect]
     Active Substance: LANSOPRAZOLE
     Indication: Intentional product misuse
  190. LANSOPRAZOLE [Suspect]
     Active Substance: LANSOPRAZOLE
     Indication: Antacid therapy
  191. SIMVASTATIN [Suspect]
     Active Substance: SIMVASTATIN
     Indication: Vitamin supplementation
  192. SIMVASTATIN [Suspect]
     Active Substance: SIMVASTATIN
     Indication: Product used for unknown indication
  193. SIMVASTATIN [Suspect]
     Active Substance: SIMVASTATIN
     Indication: Off label use
     Dosage: PATIENT ROA - ORAL
  194. SIMVASTATIN [Suspect]
     Active Substance: SIMVASTATIN
     Indication: Blood cholesterol increased
  195. SIMVASTATIN [Suspect]
     Active Substance: SIMVASTATIN
     Indication: Vitamin supplementation
     Route: 048
  196. SIMVASTATIN [Suspect]
     Active Substance: SIMVASTATIN
     Indication: Product used for unknown indication
  197. SIMVASTATIN [Suspect]
     Active Substance: SIMVASTATIN
     Indication: Off label use
  198. SIMVASTATIN [Suspect]
     Active Substance: SIMVASTATIN
     Indication: Blood cholesterol increased
  199. THEOPHYLLINE [Suspect]
     Active Substance: THEOPHYLLINE
     Indication: Off label use
     Dosage: PATIENT ROA - UNKNOWN
  200. THEOPHYLLINE [Suspect]
     Active Substance: THEOPHYLLINE
     Indication: Intentional product misuse
  201. THEOPHYLLINE [Suspect]
     Active Substance: THEOPHYLLINE
     Indication: Off label use
     Dosage: PATIENT ROA - UNKNOWN
  202. THEOPHYLLINE [Suspect]
     Active Substance: THEOPHYLLINE
     Indication: Intentional product misuse
     Dosage: PATIENT ROA - UNKNOWN
  203. THEOPHYLLINE [Suspect]
     Active Substance: THEOPHYLLINE
     Dosage: PATIENT ROA - UNKNOWN
  204. THEOPHYLLINE [Suspect]
     Active Substance: THEOPHYLLINE
     Dosage: PATIENT ROA - UNKNOWN
  205. THEOPHYLLINE [Suspect]
     Active Substance: THEOPHYLLINE
     Dosage: PATIENT ROA - UNKNOWN
  206. THEOPHYLLINE [Suspect]
     Active Substance: THEOPHYLLINE
     Dosage: PATIENT ROA - UNKNOWN
  207. THEOPHYLLINE [Suspect]
     Active Substance: THEOPHYLLINE
     Dosage: PATIENT ROA - UNKNOWN
  208. THEOPHYLLINE [Suspect]
     Active Substance: THEOPHYLLINE
     Dosage: PATIENT ROA - UNKNOWN
  209. VASOPRESSIN [Suspect]
     Active Substance: VASOPRESSIN
     Indication: Thrombosis
     Dosage: PATIENT ROA - INTRAVENOUS (NOT OTHERWISE SPECIFIED)
  210. VASOPRESSIN [Suspect]
     Active Substance: VASOPRESSIN
     Indication: Drug therapy
     Dosage: PATIENT ROA - UNKNOWN, DOSE FORM - UNKNOWN
  211. VASOPRESSIN [Suspect]
     Active Substance: VASOPRESSIN
  212. VASOPRESSIN [Suspect]
     Active Substance: VASOPRESSIN
  213. VASOPRESSIN [Suspect]
     Active Substance: VASOPRESSIN
     Dosage: PATIENT ROA- INTRAVENOUS (NOT OTHERWISE SPECIFIED), DOSE FORM - UNKNOWN
  214. VASOPRESSIN [Suspect]
     Active Substance: VASOPRESSIN
  215. VITAMIN C [Suspect]
     Active Substance: ASCORBIC ACID
     Indication: Constipation
     Route: 048
  216. VITAMIN K1 [Suspect]
     Active Substance: PHYTONADIONE
     Indication: Vitamin supplementation
     Dosage: DOSE FORM - UNKNOWN, THERAPY DURATION - 1 DAY, PATIENT ROA - INTRAVENOUS (NOT OTHERWISE SPECIFIED)
  217. VITAMIN K1 [Suspect]
     Active Substance: PHYTONADIONE
  218. VITAMIN K1 [Suspect]
     Active Substance: PHYTONADIONE
     Dosage: THERAPY DURATION - 1 DAY, DOSE FORM - UNKNOWN, PATIENT ROA - INTRAVENOUS (NOT OTHERWISE SPECIFIED)
  219. VITAMIN K1 [Suspect]
     Active Substance: PHYTONADIONE

REACTIONS (8)
  - Lower respiratory tract infection [Fatal]
  - Off label use [Fatal]
  - Drug ineffective [Fatal]
  - Vomiting [Fatal]
  - Blood calcium increased [Fatal]
  - Liver function test increased [Fatal]
  - Blood test abnormal [Fatal]
  - Blood creatinine increased [Fatal]
